FAERS Safety Report 5290186-1 (Version None)
Quarter: 2007Q2

REPORT INFORMATION
  Report Type: 
  Country: None (occurrence: None)
  Receive Date: 20070402
  Receipt Date: 20070327
  Transmission Date: 20071010
  Serious: Yes (Disabling)
  Sender: FDA-Public Use
  Company Number: SP01139

PATIENT
  Age: 61 Year
  Sex: Female
  Weight: 92.5338 kg

DRUGS (3)
  1. XIFAXAN [Suspect]
     Indication: IRRITABLE BOWEL SYNDROME
     Dosage: 1200 MG (400 MG, 3 IN 1 D)
     Dates: start: 20070201, end: 20070216
  2. TELMISARTAN [Concomitant]
  3. OXYBUTYNIN CHLORIDE [Concomitant]

REACTIONS (2)
  - BACK PAIN [None]
  - CONDITION AGGRAVATED [None]
